FAERS Safety Report 22043803 (Version 6)
Quarter: 2023Q2

REPORT INFORMATION
  Report Type: Spontaneous
  Country: US (occurrence: US)
  Receive Date: 20230228
  Receipt Date: 20230411
  Transmission Date: 20230721
  Serious: Yes (Hospitalization)
  Sender: FDA-Public Use
  Company Number: US-GLAXOSMITHKLINE-US2023AMR028522

PATIENT

DRUGS (3)
  1. ZEJULA [Suspect]
     Active Substance: NIRAPARIB
     Indication: Product used for unknown indication
     Dosage: 100 MG, QD
  2. ZEJULA [Suspect]
     Active Substance: NIRAPARIB
     Dosage: 200 MG, QD
  3. ZEJULA [Suspect]
     Active Substance: NIRAPARIB
     Dosage: 300 MG, QD
     Dates: end: 20230313

REACTIONS (16)
  - Hospitalisation [Recovered/Resolved]
  - Urinary tract infection [Recovering/Resolving]
  - Blood urine present [Not Recovered/Not Resolved]
  - Dysuria [Unknown]
  - Constipation [Unknown]
  - Tremor [Unknown]
  - Haematuria [Unknown]
  - Proteinuria [Unknown]
  - Feeling abnormal [Unknown]
  - Gait inability [Unknown]
  - Dyspnoea [Unknown]
  - Epistaxis [Unknown]
  - Eye disorder [Unknown]
  - Platelet count decreased [Unknown]
  - Haemoglobin decreased [Unknown]
  - Red blood cell count decreased [Unknown]
